FAERS Safety Report 5396730-8 (Version None)
Quarter: 2007Q3

REPORT INFORMATION
  Report Type: 
  Country: None (occurrence: None)
  Receive Date: 20070725
  Receipt Date: 20070713
  Transmission Date: 20080115
  Serious: Yes (Other)
  Sender: FDA-Public Use
  Company Number: US-SANOFI-SYNTHELABO-A01200707719

PATIENT
  Age: 44 Year
  Sex: Female

DRUGS (10)
  1. CITALOPRAM HYDROBROMIDE [Interacting]
     Indication: DEPRESSION
     Dosage: 20 MG
     Route: 048
  2. CITALOPRAM HYDROBROMIDE [Interacting]
     Dosage: 40 MG
     Route: 048
  3. MEPERIDINE HCL [Suspect]
     Indication: BREAKTHROUGH PAIN
     Dosage: 230 MG OVER 8 HOURS
     Route: 051
  4. PROMETHAZINE [Concomitant]
     Indication: NAUSEA
     Route: 042
  5. ACETAMINOPHEN AND HYDROCODONE BITARTRATE [Concomitant]
     Indication: PAIN
     Dosage: 5 MG/500 MG EVERY 6 HR
     Route: 048
  6. HYDROMORPHONE HCL [Concomitant]
     Indication: PAIN
     Route: 042
  7. FENTANYL TRANSDERMAL SYSTEM [Concomitant]
     Indication: DRUG USE FOR UNKNOWN INDICATION
     Dosage: 50 MCG/HR EVERY 72 HR
     Route: 003
  8. ENOXAPARIN SODIUM [Concomitant]
     Indication: DRUG USE FOR UNKNOWN INDICATION
     Route: 058
  9. LANSOPRAZOLE [Concomitant]
     Indication: DRUG USE FOR UNKNOWN INDICATION
     Route: 065
  10. ZOLPIDEM TARTRATE [Concomitant]
     Indication: DRUG USE FOR UNKNOWN INDICATION
     Route: 065

REACTIONS (2)
  - DRUG INTERACTION [None]
  - SEROTONIN SYNDROME [None]
